FAERS Safety Report 5211257-1 (Version None)
Quarter: 2006Q4

REPORT INFORMATION
  Report Type: 
  Country: None (occurrence: None)
  Receive Date: 20061114
  Receipt Date: 20060816
  Transmission Date: 20070319
  Serious: No
  Sender: FDA-Public Use
  Company Number: S06-USA-03260-01

PATIENT
  Age: 88 Year
  Sex: Female

DRUGS (15)
  1. NAMENDA [Suspect]
     Indication: DEMENTIA ALZHEIMER'S TYPE
     Dosage: 5 MG BID PO
     Route: 048
     Dates: start: 20060815
  2. NAMENDA [Suspect]
     Indication: DEMENTIA ALZHEIMER'S TYPE
     Dosage: 5 MG QD PO
     Route: 048
     Dates: start: 20060808, end: 20060814
  3. GALANTAMINE HYDROBROMIDE [Concomitant]
  4. LIPITOR [Concomitant]
  5. MEGACE [Concomitant]
  6. TOPROL-XL [Concomitant]
  7. OMEPRAZOLE [Concomitant]
  8. TYLENOL [Concomitant]
  9. TIMOLOL MALEATE [Concomitant]
  10. XALATAN [Concomitant]
  11. DURGESIC (FENTANYL) [Concomitant]
  12. DURGESIC (FENTANYL) [Concomitant]
  13. CALCIUM + D [Concomitant]
  14. MULTI-VITAMINS [Concomitant]
  15. PROCRIT [Concomitant]

REACTIONS (5)
  - CONFUSIONAL STATE [None]
  - DISORIENTATION [None]
  - EYE DISORDER [None]
  - PANIC REACTION [None]
  - SOMNOLENCE [None]
